FAERS Safety Report 16712184 (Version 1)
Quarter: 2019Q3

REPORT INFORMATION
  Report Type: Spontaneous
  Country: BR (occurrence: BR)
  Receive Date: 20190816
  Receipt Date: 20190816
  Transmission Date: 20191004
  Serious: Yes (Hospitalization)
  Sender: FDA-Public Use
  Company Number: BR-009507513-1908BRA004132

PATIENT
  Age: 41 Year
  Sex: Female

DRUGS (5)
  1. ZETIA [Suspect]
     Active Substance: EZETIMIBE
     Dosage: UNK
     Route: 048
  2. PREGABALIN. [Suspect]
     Active Substance: PREGABALIN
  3. ZETIA [Suspect]
     Active Substance: EZETIMIBE
     Dosage: UNK
     Route: 048
     Dates: end: 2018
  4. LYRICA [Suspect]
     Active Substance: PREGABALIN
     Dosage: ONE TABLET IN THE MORNING AND ONE TABLET AT NIGHT
     Route: 048
     Dates: start: 2014
  5. EZETIMIBE. [Suspect]
     Active Substance: EZETIMIBE
     Dosage: UNK
     Dates: start: 2018

REACTIONS (10)
  - Fibromyalgia [Not Recovered/Not Resolved]
  - Adverse event [Unknown]
  - Adverse event [Unknown]
  - Epicondylitis [Unknown]
  - Mass [Unknown]
  - Physical examination abnormal [Unknown]
  - Dizziness [Unknown]
  - Nodule [Unknown]
  - Peripheral swelling [Unknown]
  - Mucosal dryness [Recovered/Resolved]

NARRATIVE: CASE EVENT DATE: 2004
